FAERS Safety Report 15127741 (Version 4)
Quarter: 2018Q3

REPORT INFORMATION
  Report Type: Spontaneous
  Country: GB (occurrence: GB)
  Receive Date: 20180710
  Receipt Date: 20180928
  Transmission Date: 20181010
  Serious: Yes (Hospitalization, Other)
  Sender: FDA-Public Use
  Company Number: GB-GILEAD-2018-0348660

PATIENT
  Age: 81 Year
  Sex: Male
  Weight: 79 kg

DRUGS (20)
  1. INSULIN ASPART [Concomitant]
     Active Substance: INSULIN ASPART
  2. SIMVASTATIN. [Concomitant]
     Active Substance: SIMVASTATIN
  3. PARACETAMOL [Concomitant]
     Active Substance: ACETAMINOPHEN
  4. CLOPIDOGREL [Concomitant]
     Active Substance: CLOPIDOGREL BISULFATE
  5. OMEPRAZOLE. [Concomitant]
     Active Substance: OMEPRAZOLE
  6. OMEPRAZOLE. [Concomitant]
     Active Substance: OMEPRAZOLE
  7. DOXAZOSIN [Concomitant]
     Active Substance: DOXAZOSIN\DOXAZOSIN MESYLATE
  8. DOXAZOSIN [Concomitant]
     Active Substance: DOXAZOSIN\DOXAZOSIN MESYLATE
  9. AZTREONAM. [Suspect]
     Active Substance: AZTREONAM
     Indication: UROSEPSIS
     Route: 042
  10. PARACETAMOL [Concomitant]
     Active Substance: ACETAMINOPHEN
  11. CLOPIDOGREL [Concomitant]
     Active Substance: CLOPIDOGREL BISULFATE
  12. AMLODIPINE [Concomitant]
     Active Substance: AMLODIPINE BESYLATE
  13. CREON [Concomitant]
     Active Substance: PANCRELIPASE AMYLASE\PANCRELIPASE LIPASE\PANCRELIPASE PROTEASE
  14. SIMVASTATIN. [Concomitant]
     Active Substance: SIMVASTATIN
  15. INSULIN GLARGINE [Concomitant]
     Active Substance: INSULIN GLARGINE
  16. AZTREONAM LYSINE [Suspect]
     Active Substance: AZTREONAM LYSINE
     Indication: UROSEPSIS
     Dosage: 1 G, UNK
     Route: 042
     Dates: start: 20180617, end: 20180618
  17. INSULIN ASPART [Concomitant]
     Active Substance: INSULIN ASPART
  18. INSULIN GLARGINE [Concomitant]
     Active Substance: INSULIN GLARGINE
  19. AMLODIPINE [Concomitant]
     Active Substance: AMLODIPINE BESYLATE
  20. AZTREONAM. [Suspect]
     Active Substance: AZTREONAM
     Dosage: UNK
     Route: 042

REACTIONS (3)
  - Swelling [Unknown]
  - Administration site extravasation [Recovering/Resolving]
  - Blister [Unknown]

NARRATIVE: CASE EVENT DATE: 20180617
